FAERS Safety Report 10359233 (Version 2)
Quarter: 2014Q3

REPORT INFORMATION
  Report Type: Spontaneous
  Country: CN (occurrence: CN)
  Receive Date: 20140804
  Receipt Date: 20140813
  Transmission Date: 20150326
  Serious: Yes (Hospitalization)
  Sender: FDA-Public Use
  Company Number: CN-BAYER-2014-110445

PATIENT
  Sex: Female

DRUGS (4)
  1. AVELOX [Suspect]
     Active Substance: MOXIFLOXACIN HYDROCHLORIDE
     Indication: CERVICITIS
  2. AVELOX [Suspect]
     Active Substance: MOXIFLOXACIN HYDROCHLORIDE
     Indication: PELVIC INFLAMMATORY DISEASE
     Dosage: UNK
  3. AZITHROMYCIN [Concomitant]
     Active Substance: AZITHROMYCIN ANHYDROUS
     Indication: PELVIC INFLAMMATORY DISEASE
     Dosage: UNK
  4. AZITHROMYCIN [Concomitant]
     Active Substance: AZITHROMYCIN ANHYDROUS
     Indication: CERVICITIS

REACTIONS (22)
  - Off label use [None]
  - Dizziness [None]
  - Dyspnoea [None]
  - Limb discomfort [None]
  - Hypokalaemia [None]
  - Vision blurred [None]
  - Central nervous system stimulation [None]
  - Syncope [None]
  - Electrolyte imbalance [None]
  - Tension headache [None]
  - Agitation [None]
  - Vision blurred [Recovering/Resolving]
  - Hypoaesthesia [None]
  - Electrocardiogram T wave abnormal [None]
  - Insomnia [None]
  - Memory impairment [None]
  - Heart rate increased [None]
  - Paresis [None]
  - Diplopia [Recovered/Resolved]
  - Hypokinesia [None]
  - Musculoskeletal disorder [None]
  - Head discomfort [None]
